FAERS Safety Report 23365724 (Version 1)
Quarter: 2024Q1

REPORT INFORMATION
  Report Type: Report from Study
  Country: FR (occurrence: FR)
  Receive Date: 20240104
  Receipt Date: 20240104
  Transmission Date: 20240409
  Serious: Yes (Other)
  Sender: FDA-Public Use
  Company Number: FR-SA-2024SA001504

PATIENT
  Age: 73 Year
  Sex: Female

DRUGS (5)
  1. DUPILUMAB [Suspect]
     Active Substance: DUPILUMAB
     Indication: Asthma
     Dosage: 300 MG, QOW
  2. DUPILUMAB [Suspect]
     Active Substance: DUPILUMAB
     Indication: Asthma late onset
  3. OMALIZUMAB [Concomitant]
     Active Substance: OMALIZUMAB
     Dosage: UNK
  4. MEPOLIZUMAB [Concomitant]
     Active Substance: MEPOLIZUMAB
     Dosage: UNK
  5. BENRALIZUMAB [Concomitant]
     Active Substance: BENRALIZUMAB
     Dosage: UNK

REACTIONS (8)
  - Eosinophilic granulomatosis with polyangiitis [Unknown]
  - Scab [Unknown]
  - Vasculitis [Unknown]
  - Condition aggravated [Unknown]
  - Rhinitis [Unknown]
  - Rhinorrhoea [Unknown]
  - Nasal pruritus [Unknown]
  - Sneezing [Unknown]
